FAERS Safety Report 25740060 (Version 8)
Quarter: 2025Q4

REPORT INFORMATION
  Report Type: Report from Study
  Country: US (occurrence: US)
  Receive Date: 20250829
  Receipt Date: 20251201
  Transmission Date: 20260117
  Serious: Yes (Other)
  Sender: ACADIA PHARMACEUTICALS
  Company Number: US-ACADIA PHARMACEUTICALS INC.-ACA-2025-PIM-009674

PATIENT
  Age: 79 Year
  Sex: Male

DRUGS (9)
  1. NUPLAZID [Interacting]
     Active Substance: PIMAVANSERIN TARTRATE
     Indication: Parkinson^s disease psychosis
     Dosage: 34 MILLIGRAM, QD
     Route: 048
     Dates: start: 20250821
  2. SEROQUEL [Interacting]
     Active Substance: QUETIAPINE FUMARATE
     Indication: Hallucination
     Dosage: 3.5 DOSAGE FORM
     Route: 065
  3. SEROQUEL [Interacting]
     Active Substance: QUETIAPINE FUMARATE
     Dosage: DECREASED TO 1.5 DOSAGE FORM
     Route: 065
  4. SEROQUEL [Interacting]
     Active Substance: QUETIAPINE FUMARATE
     Dosage: 3 DOSAGE FORM
     Route: 065
  5. SEROQUEL [Interacting]
     Active Substance: QUETIAPINE FUMARATE
     Dosage: 12.5 UNK
     Route: 065
  6. SINEMET [Concomitant]
     Active Substance: CARBIDOPA\LEVODOPA
  7. CLONAZEPAM [Concomitant]
     Active Substance: CLONAZEPAM
  8. ZOFRAN [Concomitant]
     Active Substance: ONDANSETRON HYDROCHLORIDE
  9. QUETIAPINE [Concomitant]
     Active Substance: QUETIAPINE

REACTIONS (13)
  - Hallucination [Recovered/Resolved]
  - Hallucination [Recovering/Resolving]
  - Drug interaction [Not Recovered/Not Resolved]
  - Somnolence [Unknown]
  - Confusional state [Unknown]
  - Muscle fatigue [Unknown]
  - Headache [Recovered/Resolved]
  - Fatigue [Recovered/Resolved]
  - Arthralgia [Recovered/Resolved]
  - Neck pain [Recovered/Resolved]
  - Dizziness [Recovered/Resolved]
  - Asthenia [Recovered/Resolved]
  - Therapeutic product effect incomplete [Unknown]

NARRATIVE: CASE EVENT DATE: 20250826
